FAERS Safety Report 19911356 (Version 1)
Quarter: 2021Q4

REPORT INFORMATION
  Report Type: Spontaneous
  Country: DE (occurrence: DE)
  Receive Date: 20211004
  Receipt Date: 20211004
  Transmission Date: 20220303
  Serious: Yes (Congenital Anomaly, Other)
  Sender: FDA-Public Use
  Company Number: DE-NOVARTISPH-NVSC2021DE219761

PATIENT
  Age: 1 Day
  Sex: Female
  Weight: 2.81 kg

DRUGS (7)
  1. LAMOTRIGINE [Suspect]
     Active Substance: LAMOTRIGINE
     Indication: Epilepsy
     Dosage: 500 MG
     Route: 064
     Dates: start: 20200508, end: 20210129
  2. LAMOTRIGINE [Suspect]
     Active Substance: LAMOTRIGINE
     Dosage: 525 MG, QD
     Route: 065
  3. METHYLDOPA [Concomitant]
     Active Substance: METHYLDOPA
     Indication: Gestational hypertension
     Dosage: 1000 MG, QD
     Route: 064
  4. METHYLDOPA [Concomitant]
     Active Substance: METHYLDOPA
     Dosage: 500-250-250MG DAILY
     Route: 064
  5. FOLISURE [Concomitant]
     Indication: Prophylaxis of neural tube defect
     Dosage: UNK
     Route: 064
     Dates: start: 20200508, end: 20210129
  6. PERTUSSIS VACCINE [Concomitant]
     Active Substance: PERTUSSIS VACCINE
     Indication: Immunisation
     Dosage: UNK
     Route: 064
  7. POLIOMYELITIS VACCINE NOS [Concomitant]
     Active Substance: POLIOMYELITIS VACCINE
     Indication: Immunisation
     Dosage: UNK
     Route: 064

REACTIONS (3)
  - Cleft palate [Not Recovered/Not Resolved]
  - Retrognathia [Unknown]
  - Foetal exposure during pregnancy [Unknown]

NARRATIVE: CASE EVENT DATE: 20210129
